FAERS Safety Report 15493723 (Version 1)
Quarter: 2018Q4

REPORT INFORMATION
  Report Type: Spontaneous
  Country: US (occurrence: US)
  Receive Date: 20181011
  Receipt Date: 20181011
  Transmission Date: 20190205
  Serious: Yes (Life-Threatening, Hospitalization)
  Sender: FDA-Public Use
  Company Number: None

PATIENT
  Age: 61 Year
  Sex: Female
  Weight: 74.39 kg

DRUGS (1)
  1. JARDIANCE [Suspect]
     Active Substance: EMPAGLIFLOZIN
     Indication: TYPE 2 DIABETES MELLITUS
     Route: 048
     Dates: start: 20170601, end: 20180501

REACTIONS (8)
  - Foreign body [None]
  - Perineal pain [None]
  - Scrotal oedema [None]
  - Confusional state [None]
  - Fournier^s gangrene [None]
  - Dry gangrene [None]
  - Peripheral ischaemia [None]
  - Debridement [None]

NARRATIVE: CASE EVENT DATE: 20180501
